FAERS Safety Report 8132544-3 (Version None)
Quarter: 2012Q1

REPORT INFORMATION
  Report Type: 
  Country: None (occurrence: None)
  Receive Date: 20120213
  Receipt Date: 20120207
  Transmission Date: 20120608
  Serious: No
  Sender: FDA-Public Use
  Company Number: US-PFIZER INC-2012033681

PATIENT
  Sex: Female
  Weight: 27.2 kg

DRUGS (2)
  1. ZOLOFT [Suspect]
     Indication: ANXIETY
     Dosage: 0.5 ML, AS NEEDED
     Route: 048
     Dates: start: 20111122
  2. ZOLOFT [Suspect]
     Indication: SLEEP TERROR

REACTIONS (1)
  - DISTURBANCE IN ATTENTION [None]
